FAERS Safety Report 12321758 (Version 1)
Quarter: 2016Q2

REPORT INFORMATION
  Report Type: Spontaneous
  Country: US (occurrence: None)
  Receive Date: 20160429
  Receipt Date: 20160429
  Transmission Date: 20160815
  Serious: Yes (Other)
  Sender: FDA-Public Use
  Company Number: None

PATIENT
  Age: 56 Year
  Sex: Female
  Weight: 63.96 kg

DRUGS (6)
  1. LEVOTHYROXINE 50MCG MYLAN PHARM [Suspect]
     Active Substance: LEVOTHYROXINE
     Indication: AUTOIMMUNE THYROIDITIS
     Dosage: 50MCG 1 DAILY 1
     Dates: start: 20140303, end: 20160109
  2. AXERT [Concomitant]
     Active Substance: ALMOTRIPTAN MALATE
  3. LEVOCETIRIZINE [Concomitant]
     Active Substance: LEVOCETIRIZINE
  4. HERBAL TEAS [Concomitant]
     Active Substance: HERBALS
  5. VITAMIN D3 [Concomitant]
     Active Substance: CHOLECALCIFEROL
  6. SYNTHROID [Concomitant]
     Active Substance: LEVOTHYROXINE SODIUM

REACTIONS (4)
  - Product substitution issue [None]
  - Autoimmune thyroiditis [None]
  - Condition aggravated [None]
  - Drug effect decreased [None]

NARRATIVE: CASE EVENT DATE: 2014
